FAERS Safety Report 5056292-1 (Version None)
Quarter: 2006Q3

REPORT INFORMATION
  Report Type: 
  Country: None (occurrence: None)
  Receive Date: 20060717
  Receipt Date: 20060710
  Transmission Date: 20061208
  Serious: Yes (Death)
  Sender: FDA-Public Use
  Company Number: 0602094US

PATIENT
  Age: 86 Year
  Sex: Female

DRUGS (1)
  1. COMBIGAN (BRIMONIDINE TARTRATE, TIMOLOL MALEATE) EYE DROPS, SOLUTION [Suspect]
     Indication: GLAUCOMA
     Dosage: BID, OPHTHALMIC
     Route: 047
     Dates: start: 20060123, end: 20060418

REACTIONS (1)
  - PANCREATIC CARCINOMA [None]
